FAERS Safety Report 4323230-6 (Version None)
Quarter: 2004Q1

REPORT INFORMATION
  Report Type: 
  Country: None (occurrence: None)
  Receive Date: 20040322
  Receipt Date: 20040310
  Transmission Date: 20041129
  Serious: Yes (Disabling)
  Sender: FDA-Public Use
  Company Number: 2004UW04544

PATIENT
  Age: 34 Year
  Sex: Male
  Weight: 136.0791 kg

DRUGS (7)
  1. DIPRIVAN [Suspect]
     Dosage: 70 UG/KG/MIN IV
     Route: 042
  2. DIPRIVAN [Suspect]
     Dosage: 40 UG/KG/MIN IV
     Route: 042
     Dates: start: 20040309
  3. PEPCID [Concomitant]
  4. DILANTIN [Concomitant]
  5. VANCO [Concomitant]
  6. DECADRON [Concomitant]
  7. COLACE [Concomitant]

REACTIONS (1)
  - PARALYSIS [None]
